FAERS Safety Report 4490139-7 (Version None)
Quarter: 2004Q4

REPORT INFORMATION
  Report Type: 
  Country: None (occurrence: None)
  Receive Date: 20041028
  Receipt Date: 20041015
  Transmission Date: 20050328
  Serious: Yes (Other)
  Sender: FDA-Public Use
  Company Number: 2004052676

PATIENT
  Sex: Female
  Weight: 111.1313 kg

DRUGS (2)
  1. ZYRTEC [Suspect]
     Indication: BRONCHOSPASM
     Dosage: 10MG; ORAL
     Route: 048
  2. LEVOTHYROXINE SODIUM [Concomitant]

REACTIONS (5)
  - HYPOAESTHESIA [None]
  - OROPHARYNGEAL SWELLING [None]
  - STRESS SYMPTOMS [None]
  - THROAT TIGHTNESS [None]
  - URTICARIA [None]
